FAERS Safety Report 5830307-2 (Version None)
Quarter: 2008Q3

REPORT INFORMATION
  Report Type: 
  Country: None (occurrence: None)
  Receive Date: 20080801
  Receipt Date: 20080722
  Transmission Date: 20090109
  Serious: Yes (Other)
  Sender: FDA-Public Use
  Company Number: DE-GILEAD-2008-0017499

PATIENT
  Sex: Male

DRUGS (3)
  1. TRUVADA [Suspect]
  2. SUSTIVA [Concomitant]
  3. LORAZEPAM [Concomitant]

REACTIONS (9)
  - ABDOMINAL PAIN [None]
  - BLOOD PRESSURE INCREASED [None]
  - CEREBROVASCULAR ACCIDENT [None]
  - DIARRHOEA [None]
  - FLATULENCE [None]
  - HEADACHE [None]
  - NAUSEA [None]
  - THINKING ABNORMAL [None]
  - VERTIGO [None]
